FAERS Safety Report 7674887-3 (Version None)
Quarter: 2011Q3

REPORT INFORMATION
  Report Type: 
  Country: None (occurrence: None)
  Receive Date: 20110810
  Receipt Date: 20110808
  Transmission Date: 20111222
  Serious: No
  Sender: FDA-Public Use
  Company Number: US-TEVA-295705USA

PATIENT
  Sex: Female
  Weight: 73.548 kg

DRUGS (2)
  1. PLAN B ONE-STEP [Suspect]
     Indication: POST COITAL CONTRACEPTION
     Dosage: 1.5 MILLIGRAM;
     Route: 048
     Dates: start: 20110731, end: 20110731
  2. ANTIBIOTICS [Suspect]
     Indication: CYSTITIS

REACTIONS (3)
  - NAUSEA [None]
  - DIZZINESS [None]
  - BREAST PAIN [None]
